FAERS Safety Report 13844530 (Version 2)
Quarter: 2017Q3

REPORT INFORMATION
  Report Type: Report from Study
  Country: US (occurrence: US)
  Receive Date: 20170808
  Receipt Date: 20170818
  Transmission Date: 20171127
  Serious: Yes (Hospitalization)
  Sender: FDA-Public Use
  Company Number: US-ROCHE-1972333

PATIENT
  Age: 67 Year
  Sex: Female
  Weight: 72.2 kg

DRUGS (1)
  1. TRASTUZUMAB EMTANSINE [Suspect]
     Active Substance: ADO-TRASTUZUMAB EMTANSINE
     Indication: BREAST CANCER
     Dosage: MOST RECENT DOSE ON 17/JUL/2017, 17 CYCLE APPROXIMATELY 1 YEAR
     Route: 042
     Dates: start: 20161128

REACTIONS (1)
  - Lower gastrointestinal haemorrhage [Not Recovered/Not Resolved]

NARRATIVE: CASE EVENT DATE: 20170730
